FAERS Safety Report 23879498 (Version 1)
Quarter: 2024Q2

REPORT INFORMATION
  Report Type: Spontaneous
  Country: US (occurrence: None)
  Receive Date: 20240520
  Receipt Date: 20240520
  Transmission Date: 20240716
  Serious: No
  Sender: FDA-Public Use
  Company Number: None

PATIENT
  Age: 57 Year
  Sex: Female
  Weight: 84.6 kg

DRUGS (2)
  1. DOTTI [Suspect]
     Active Substance: ESTRADIOL
     Indication: Menopausal symptoms
     Dates: start: 20240510, end: 20240519
  2. VITAMINS [Concomitant]
     Active Substance: VITAMINS

REACTIONS (4)
  - Diarrhoea [None]
  - Nausea [None]
  - Abdominal pain upper [None]
  - Gastrointestinal disorder [None]

NARRATIVE: CASE EVENT DATE: 20240514
